FAERS Safety Report 8185525-8 (Version None)
Quarter: 2012Q1

REPORT INFORMATION
  Report Type: 
  Country: None (occurrence: None)
  Receive Date: 20120305
  Receipt Date: 20120123
  Transmission Date: 20120608
  Serious: Yes (Other)
  Sender: FDA-Public Use
  Company Number: US-ROCHE-1006302

PATIENT
  Sex: Female
  Weight: 68.1 kg

DRUGS (1)
  1. ACCUTANE [Suspect]
     Indication: ACNE CYSTIC
     Route: 048
     Dates: start: 20040709, end: 20050801

REACTIONS (5)
  - UMBILICAL HERNIA [None]
  - PROCTITIS ULCERATIVE [None]
  - HAEMORRHOIDS [None]
  - STRESS [None]
  - INFLAMMATORY BOWEL DISEASE [None]
